FAERS Safety Report 22216692 (Version 1)
Quarter: 2023Q2

REPORT INFORMATION
  Report Type: Spontaneous
  Country: US (occurrence: US)
  Receive Date: 20230417
  Receipt Date: 20230417
  Transmission Date: 20230722
  Serious: No
  Sender: FDA-Public Use
  Company Number: US-ENDO PHARMACEUTICALS INC-2023-001042

PATIENT
  Sex: Male

DRUGS (1)
  1. AVEED [Suspect]
     Active Substance: TESTOSTERONE UNDECANOATE
     Indication: Testicular failure
     Dosage: UNK 750/3 MG/ML, UNKNOWN
     Route: 051

REACTIONS (2)
  - Urticaria [Not Recovered/Not Resolved]
  - Acne pustular [Not Recovered/Not Resolved]
